FAERS Safety Report 25757598 (Version 1)
Quarter: 2025Q3

REPORT INFORMATION
  Report Type: Spontaneous
  Country: CA (occurrence: CA)
  Receive Date: 20250903
  Receipt Date: 20250903
  Transmission Date: 20251020
  Serious: Yes (Death, Hospitalization, Other)
  Sender: AMGEN
  Company Number: CA-AMGEN-CANSP2025171331

PATIENT

DRUGS (4)
  1. RITUXIMAB [Suspect]
     Active Substance: RITUXIMAB
     Indication: Nodular lymphocyte predominant Hodgkin lymphoma
     Route: 040
  2. RITUXIMAB [Suspect]
     Active Substance: RITUXIMAB
     Route: 058
  3. RITUXIMAB [Suspect]
     Active Substance: RITUXIMAB
     Dosage: 1400 MILLIGRAM, Q3MO, MAINTENANCE, FOR 2 YEARS
     Route: 058
  4. BENDAMUSTINE [Suspect]
     Active Substance: BENDAMUSTINE
     Indication: Nodular lymphocyte predominant Hodgkin lymphoma
     Route: 040

REACTIONS (13)
  - Death [Fatal]
  - COVID-19 [Fatal]
  - Acute myeloid leukaemia [Fatal]
  - Neutropenia [Unknown]
  - Nodular lymphocyte predominant Hodgkin lymphoma [Unknown]
  - Rash [Unknown]
  - Metastasis [Unknown]
  - Infusion related reaction [Unknown]
  - Lymphadenopathy [Unknown]
  - Infection [Unknown]
  - Therapy partial responder [Unknown]
  - Drug effective for unapproved indication [Unknown]
  - Off label use [Unknown]
